FAERS Safety Report 10239078 (Version 1)
Quarter: 2014Q2

REPORT INFORMATION
  Report Type: Spontaneous
  Country: US (occurrence: US)
  Receive Date: 20140616
  Receipt Date: 20140616
  Transmission Date: 20141212
  Serious: No
  Sender: FDA-Public Use
  Company Number: US-009507513-1406USA006608

PATIENT
  Sex: Female

DRUGS (2)
  1. CLARITIN-D-12 [Suspect]
     Indication: COUGH
     Dosage: 5 MG, BID
     Route: 048
  2. METAMUCIL [Suspect]
     Indication: PRODUCT USED FOR UNKNOWN INDICATION
     Dosage: UNK, UNKNOWN
     Route: 065

REACTIONS (3)
  - Fatigue [Unknown]
  - Off label use [Unknown]
  - Drug prescribing error [Unknown]
